FAERS Safety Report 24976676 (Version 4)
Quarter: 2025Q1

REPORT INFORMATION
  Report Type: Spontaneous
  Country: FR (occurrence: FR)
  Receive Date: 20250217
  Receipt Date: 20250308
  Transmission Date: 20250409
  Serious: Yes (Hospitalization, Disabling)
  Sender: IPSEN BIOPHARMACEUTICALS, INC.
  Company Number: FR-IPSEN Group, Research and Development-2025-03538

PATIENT
  Age: 61 Year
  Sex: Male
  Weight: 104 kg

DRUGS (16)
  1. DYSPORT [Suspect]
     Active Substance: ABOBOTULINUMTOXINA
     Indication: Muscle spasticity
     Route: 030
     Dates: start: 20181224, end: 20181224
  2. DYSPORT [Suspect]
     Active Substance: ABOBOTULINUMTOXINA
     Route: 030
  3. FLUOXETINE [Concomitant]
     Active Substance: FLUOXETINE HYDROCHLORIDE
  4. VIMPAT [Concomitant]
     Active Substance: LACOSAMIDE
  5. KEPPRA [Concomitant]
     Active Substance: LEVETIRACETAM
  6. RAMIPRIL [Concomitant]
     Active Substance: RAMIPRIL
  7. METFORMIN [Concomitant]
     Active Substance: METFORMIN HYDROCHLORIDE
  8. METFORMIN HYDROCHLORIDE\VILDAGLIPTIN [Concomitant]
     Active Substance: METFORMIN HYDROCHLORIDE\VILDAGLIPTIN
  9. KARDEGIC [Concomitant]
     Active Substance: ASPIRIN DL-LYSINE
  10. TAMSULOSIN [Concomitant]
     Active Substance: TAMSULOSIN
  11. ROSUVASTATIN [Concomitant]
     Active Substance: ROSUVASTATIN
  12. NOVORAPID [Concomitant]
     Active Substance: INSULIN ASPART
  13. TRESIBA [Concomitant]
     Active Substance: INSULIN DEGLUDEC
  14. ACUPAN [Concomitant]
     Active Substance: NEFOPAM HYDROCHLORIDE
  15. ACETAMINOPHEN\OPIUM [Concomitant]
     Active Substance: ACETAMINOPHEN\OPIUM
  16. FUROSEMIDE [Concomitant]
     Active Substance: FUROSEMIDE

REACTIONS (5)
  - Asthenia [Recovered/Resolved]
  - Pyrexia [Recovered/Resolved]
  - Dizziness [Recovered/Resolved]
  - Dysstasia [Recovered/Resolved]
  - Dysarthria [Recovered/Resolved]

NARRATIVE: CASE EVENT DATE: 20240814
